FAERS Safety Report 8978048 (Version 2)
Quarter: 2012Q4

REPORT INFORMATION
  Report Type: Spontaneous
  Country: GB (occurrence: None)
  Receive Date: 20120820
  Receipt Date: 20120914
  Transmission Date: 20130627
  Serious: Yes (Other)
  Sender: FDA-Public Use
  Company Number: 218007

PATIENT
  Sex: Female

DRUGS (4)
  1. INNOHEP [Suspect]
     Indication: ANTICOAGULANT THERAPY
     Dosage: (2 in 1)
  2. INNOHEP [Suspect]
     Indication: PREGNANCY
     Dosage: (2 in 1)
  3. ASPIRIN [Suspect]
     Indication: ANTICOAGULANT THERAPY
  4. ASPIRIN [Suspect]
     Indication: PREGNANCY

REACTIONS (6)
  - Maternal exposure during pregnancy [None]
  - Premature delivery [None]
  - Tricuspid valve disease [None]
  - Cardiac murmur [None]
  - Medical device entrapment [None]
  - Thrombosis in device [None]
